FAERS Safety Report 15561209 (Version 1)
Quarter: 2018Q4

REPORT INFORMATION
  Report Type: Spontaneous
  Country: US (occurrence: US)
  Receive Date: 20181029
  Receipt Date: 20181029
  Transmission Date: 20190205
  Serious: No
  Sender: FDA-Public Use
  Company Number: US-MYLANLABS-2018M1073109

PATIENT
  Sex: Female
  Weight: 55 kg

DRUGS (3)
  1. PAROXETINE. [Suspect]
     Active Substance: PAROXETINE
     Dosage: 2 MG, UNK
     Route: 048
  2. PAROXETINE. [Suspect]
     Active Substance: PAROXETINE
     Indication: ANXIETY
     Dosage: 5 MG, FOR A WEEK
     Route: 048
     Dates: start: 201710
  3. PAROXETINE. [Suspect]
     Active Substance: PAROXETINE
     Dosage: FOR EIGHT MONTHS
     Route: 048

REACTIONS (15)
  - Loss of employment [Not Recovered/Not Resolved]
  - Wrong technique in product usage process [Not Recovered/Not Resolved]
  - Balance disorder [Unknown]
  - Partner stress [Not Recovered/Not Resolved]
  - Decreased interest [Not Recovered/Not Resolved]
  - Crying [Unknown]
  - Psoriasis [Not Recovered/Not Resolved]
  - Drug ineffective [Unknown]
  - Disturbance in attention [Not Recovered/Not Resolved]
  - Sleep disorder [Not Recovered/Not Resolved]
  - Vertigo [Unknown]
  - Decreased appetite [Not Recovered/Not Resolved]
  - Nausea [Unknown]
  - Feeling abnormal [Unknown]
  - Weight increased [Unknown]
